FAERS Safety Report 9265325 (Version 1)
Quarter: 2013Q2

REPORT INFORMATION
  Report Type: Spontaneous
  Country: US (occurrence: US)
  Receive Date: 20130501
  Receipt Date: 20130501
  Transmission Date: 20140414
  Serious: No
  Sender: FDA-Public Use
  Company Number: US-ASTRAZENECA-2013SE25774

PATIENT
  Age: 73 Year
  Sex: Female
  Weight: 98.9 kg

DRUGS (3)
  1. NEXIUM [Suspect]
     Indication: GASTROOESOPHAGEAL REFLUX DISEASE
     Route: 048
     Dates: start: 2004, end: 201302
  2. PRILOSEC OTC [Suspect]
     Indication: GASTROOESOPHAGEAL REFLUX DISEASE
     Route: 048
     Dates: start: 201302
  3. CARAFATE [Concomitant]
     Indication: GASTRIC DISORDER
     Dosage: TID
     Dates: start: 2005

REACTIONS (3)
  - Sleep disorder due to a general medical condition [Unknown]
  - Disease recurrence [Unknown]
  - Drug ineffective [Unknown]
